FAERS Safety Report 8597233-X (Version None)
Quarter: 2012Q3

REPORT INFORMATION
  Report Type: 
  Country: None (occurrence: None)
  Receive Date: 20120816
  Receipt Date: 20120806
  Transmission Date: 20120928
  Serious: Yes (Hospitalization)
  Sender: FDA-Public Use
  Company Number: US-BIOGENIDEC-2012BI027029

PATIENT
  Age: 42 Year
  Sex: Male

DRUGS (5)
  1. INTERFERON BETA-1A [Suspect]
     Route: 030
     Dates: end: 20120612
  2. INTERFERON BETA-1A [Suspect]
     Route: 030
     Dates: start: 20120708
  3. STEROIDS (NOS) [Concomitant]
     Route: 048
  4. VICODIN [Concomitant]
  5. INTERFERON BETA-1A [Suspect]
     Indication: MULTIPLE SCLEROSIS
     Route: 030
     Dates: start: 20020428

REACTIONS (7)
  - INJECTION SITE ABSCESS [None]
  - INSOMNIA [None]
  - COGNITIVE DISORDER [None]
  - OPTIC NEUROPATHY [None]
  - INJECTION SITE HAEMATOMA [None]
  - HEADACHE [None]
  - MEMORY IMPAIRMENT [None]
